FAERS Safety Report 24336992 (Version 1)
Quarter: 2024Q3

REPORT INFORMATION
  Report Type: Spontaneous
  Country: US (occurrence: US)
  Receive Date: 20240919
  Receipt Date: 20240919
  Transmission Date: 20241016
  Serious: Yes (Hospitalization)
  Sender: NOVARTIS
  Company Number: US-002147023-NVSC2024US185676

PATIENT
  Age: 65 Year
  Weight: 77.098 kg

DRUGS (1)
  1. KISQALI [Suspect]
     Active Substance: RIBOCICLIB
     Indication: Breast cancer female
     Dosage: 600 MG
     Route: 048
     Dates: start: 202404, end: 20240829

REACTIONS (3)
  - Fall [Unknown]
  - Lower limb fracture [Unknown]
  - Constipation [Unknown]

NARRATIVE: CASE EVENT DATE: 20240829
